FAERS Safety Report 5153776-2 (Version None)
Quarter: 2006Q4

REPORT INFORMATION
  Report Type: 
  Country: None (occurrence: None)
  Receive Date: 20061120
  Receipt Date: 20061106
  Transmission Date: 20070319
  Serious: Yes (Other)
  Sender: FDA-Public Use
  Company Number: US-JNJFOC-20061102053

PATIENT
  Age: 47 Year
  Sex: Male
  Weight: 121.56 kg

DRUGS (5)
  1. DURAGESIC-100 [Suspect]
     Indication: NEUROPATHY PERIPHERAL
     Route: 062
  2. FENTANYL TRANSDERMAL SYSTEM [Suspect]
     Route: 062
  3. FENTANYL TRANSDERMAL SYSTEM [Suspect]
     Indication: NEUROPATHY PERIPHERAL
     Route: 062
  4. METHADONE HCL [Concomitant]
     Indication: BREAKTHROUGH PAIN
     Dosage: AS NEEDED
     Route: 048
  5. OXYCODONE HCL [Concomitant]
     Indication: BREAKTHROUGH PAIN
     Dosage: 3-4 DAILY
     Route: 048

REACTIONS (6)
  - BLOOD CREATININE INCREASED [None]
  - DRUG INEFFECTIVE [None]
  - DRY SKIN [None]
  - ERYTHEMA [None]
  - HYPERTENSION [None]
  - OEDEMA PERIPHERAL [None]
